FAERS Safety Report 9711168 (Version 1)
Quarter: 2013Q4

REPORT INFORMATION
  Report Type: Spontaneous
  Country: US (occurrence: US)
  Receive Date: 20131126
  Receipt Date: 20131126
  Transmission Date: 20140711
  Serious: No
  Sender: FDA-Public Use
  Company Number: US-BRISTOL-MYERS SQUIBB COMPANY-19182278

PATIENT
  Age: 67 Year
  Sex: Female
  Weight: 97.05 kg

DRUGS (7)
  1. BYETTA [Suspect]
     Indication: TYPE 2 DIABETES MELLITUS
     Dosage: INTER ON SEP11,RESTARTED ON 02AUG13, STOPPED ON 03AUG13
     Dates: start: 201010
  2. BYDUREON [Suspect]
     Indication: TYPE 2 DIABETES MELLITUS
     Dates: start: 201110
  3. SYNTHROID [Concomitant]
  4. PLAVIX [Concomitant]
  5. KLOR-CON [Concomitant]
  6. GLUMETZA [Concomitant]
  7. LANTUS [Concomitant]

REACTIONS (2)
  - Nausea [Unknown]
  - Vomiting [Unknown]
